FAERS Safety Report 7731443-6 (Version None)
Quarter: 2011Q3

REPORT INFORMATION
  Report Type: 
  Country: None (occurrence: None)
  Receive Date: 20110906
  Receipt Date: 20110602
  Transmission Date: 20111222
  Serious: No
  Sender: FDA-Public Use
  Company Number: US-AMGEN-USASP2011028555

PATIENT
  Age: 86 Year
  Sex: Female

DRUGS (12)
  1. EXELON [Concomitant]
     Route: 061
  2. PRILOSEC [Concomitant]
  3. MULTI-VITAMINS [Concomitant]
  4. REGLAN [Concomitant]
  5. POTASSIUM [Concomitant]
  6. PROLIA [Suspect]
     Indication: OSTEOPOROSIS POSTMENOPAUSAL
     Dates: start: 20101228
  7. ZOCOR [Concomitant]
  8. CALCIUM +VIT D [Concomitant]
  9. ASPIRIN [Concomitant]
  10. LEVODOPA [Concomitant]
  11. ATENOLOL [Concomitant]
  12. ANTIVERT                           /03350601/ [Concomitant]

REACTIONS (4)
  - BACK PAIN [None]
  - PAIN IN EXTREMITY [None]
  - ORAL PAIN [None]
  - CYSTITIS [None]
